FAERS Safety Report 6941616-8 (Version None)
Quarter: 2010Q3

REPORT INFORMATION
  Report Type: 
  Country: None (occurrence: None)
  Receive Date: 20100825
  Receipt Date: 20100820
  Transmission Date: 20110219
  Serious: Yes (Hospitalization)
  Sender: FDA-Public Use
  Company Number: US-GILEAD-2010-0031224

PATIENT
  Sex: Female

DRUGS (9)
  1. LETAIRIS [Suspect]
     Indication: PULMONARY ARTERIAL HYPERTENSION
     Route: 048
     Dates: start: 20100614
  2. REVATIO [Concomitant]
  3. WARFARIN SODIUM [Concomitant]
  4. QVAR 40 [Concomitant]
  5. RANITIDINE [Concomitant]
  6. LORAZEPAM [Concomitant]
  7. FLUOXETINE [Concomitant]
  8. VICODIN [Concomitant]
  9. NICOTINE [Concomitant]

REACTIONS (2)
  - CHEST PAIN [None]
  - HYPOXIA [None]
